FAERS Safety Report 16167357 (Version 1)
Quarter: 2019Q2

REPORT INFORMATION
  Report Type: Spontaneous
  Country: US (occurrence: US)
  Receive Date: 20190408
  Receipt Date: 20190408
  Transmission Date: 20190711
  Serious: Yes (Other)
  Sender: FDA-Public Use
  Company Number: US-ROCHE-2295099

PATIENT
  Age: 58 Year
  Sex: Male

DRUGS (10)
  1. FLUOROURACIL. [Concomitant]
     Active Substance: FLUOROURACIL
     Indication: COLON CANCER METASTATIC
     Dosage: SECOND-LINE TREATMENT WITH FOLFOX AND BEVACIZUMAB
     Route: 065
     Dates: start: 20181120, end: 20190212
  2. IRINOTECAN [Concomitant]
     Active Substance: IRINOTECAN
     Indication: COLON CANCER METASTATIC
     Route: 065
     Dates: start: 20170601, end: 20180423
  3. FOLINIC ACID [Concomitant]
     Active Substance: LEUCOVORIN
     Indication: COLON CANCER METASTATIC
     Dosage: SECOND-LINE TX FOLFOX AND BEVACIZUMAB
     Route: 065
     Dates: start: 20181120, end: 20190212
  4. AVASTIN [Suspect]
     Active Substance: BEVACIZUMAB
     Dosage: LAST RECEIVED TREATMENT IN ISRAEL ;ONGOING: NO
     Route: 065
     Dates: end: 20190212
  5. AVASTIN [Suspect]
     Active Substance: BEVACIZUMAB
     Indication: COLON CANCER METASTATIC
     Dosage: SECOND-LINE TREATMENT WITH FOLFOX AND BEVACIZUMAB ;ONGOING: NO
     Route: 065
     Dates: start: 20181120
  6. FLUOROURACIL. [Concomitant]
     Active Substance: FLUOROURACIL
     Indication: COLON CANCER STAGE IV
     Dosage: COMPLETED 18 CYCLES OF FOLFIRI
     Route: 065
     Dates: start: 20170601, end: 20180423
  7. AVASTIN [Suspect]
     Active Substance: BEVACIZUMAB
     Indication: COLON CANCER STAGE IV
     Dosage: COMPLETED 18 CYCLES OF FOLFIRI AND BEVACIZUMAB
     Route: 065
     Dates: start: 20170601, end: 20180423
  8. FOLINIC ACID [Concomitant]
     Active Substance: LEUCOVORIN
     Indication: COLON CANCER STAGE IV
     Dosage: COMPLETED 18 CYCLES OF FOLFIRI AND BEVACIZUMAB ;ONGOING: NO
     Route: 065
     Dates: start: 20170601, end: 20180423
  9. OXALIPLATIN. [Concomitant]
     Active Substance: OXALIPLATIN
     Indication: COLON CANCER METASTATIC
     Route: 065
     Dates: start: 20181120, end: 20190212
  10. ASCORBIC ACID. [Concomitant]
     Active Substance: ASCORBIC ACID
     Dosage: TAKE 500 MG BY MOUTH DAILY AS NEEDED
     Route: 065
     Dates: start: 20170430

REACTIONS (5)
  - Blood alkaline phosphatase increased [Unknown]
  - Abdominal hernia [Unknown]
  - Aspartate aminotransferase increased [Unknown]
  - Blood glucose increased [Unknown]
  - Pulmonary embolism [Unknown]

NARRATIVE: CASE EVENT DATE: 20181112
